FAERS Safety Report 5152894-2 (Version None)
Quarter: 2006Q4

REPORT INFORMATION
  Report Type: 
  Country: None (occurrence: None)
  Receive Date: 20061117
  Receipt Date: 20061106
  Transmission Date: 20070319
  Serious: Yes (Other)
  Sender: FDA-Public Use
  Company Number: US-JNJFOC-20061102068

PATIENT
  Sex: Male
  Weight: 83.92 kg

DRUGS (7)
  1. FENTANYL TRANSDERMAL SYSTEM [Suspect]
     Dosage: 100UG/HR 75UG/HR
     Route: 062
  2. FENTANYL TRANSDERMAL SYSTEM [Suspect]
     Indication: PAIN
     Route: 062
  3. IBUPROFEN [Concomitant]
     Indication: PAIN
     Route: 048
  4. TYLENOL [Concomitant]
     Indication: PAIN
     Route: 048
  5. CYCLOBENZAPRINE HCL [Concomitant]
     Indication: MYALGIA
     Route: 048
  6. UNSPECIFIED ANTI-DEPRESSION MEDICATION [Concomitant]
     Indication: DEPRESSION
     Route: 048
  7. UNSPECIFIED DIABETIC MEDICATION [Concomitant]
     Indication: DIABETES MELLITUS
     Route: 048

REACTIONS (5)
  - CONVULSION [None]
  - DELIRIUM [None]
  - INAPPROPRIATE SCHEDULE OF DRUG ADMINISTRATION [None]
  - MALAISE [None]
  - MYALGIA [None]
